FAERS Safety Report 9144123 (Version 2)
Quarter: 2013Q2

REPORT INFORMATION
  Report Type: Spontaneous
  Country: FR (occurrence: FR)
  Receive Date: 20130306
  Receipt Date: 20130429
  Transmission Date: 20140414
  Serious: Yes (Hospitalization)
  Sender: FDA-Public Use
  Company Number: FR-GLAXOSMITHKLINE-B0871944A

PATIENT
  Age: 84 Year
  Sex: Female
  Weight: 60 kg

DRUGS (5)
  1. ARIXTRA [Suspect]
     Indication: THROMBOSIS PROPHYLAXIS
     Dosage: 2.5MG PER DAY
     Route: 058
     Dates: start: 20130122, end: 20130125
  2. MINI-SINTROM [Suspect]
     Indication: ATRIAL FIBRILLATION
     Dosage: 1UNIT PER DAY
     Route: 048
  3. HEMIGOXINE [Concomitant]
     Indication: ATRIAL FIBRILLATION
     Dosage: 1UNIT PER DAY
     Route: 048
     Dates: start: 201301
  4. CORDARONE [Concomitant]
     Indication: ATRIAL FIBRILLATION
     Dosage: 1UNIT PER DAY
     Route: 048
     Dates: start: 201301
  5. INNOHEP [Concomitant]
     Dosage: 1UNIT PER DAY
     Route: 058
     Dates: start: 20130128

REACTIONS (2)
  - Haematoma [Recovering/Resolving]
  - Off label use [Unknown]
